FAERS Safety Report 7031983-1 (Version None)
Quarter: 2010Q4

REPORT INFORMATION
  Report Type: 
  Country: None (occurrence: None)
  Receive Date: 20101007
  Receipt Date: 20100922
  Transmission Date: 20110411
  Serious: Yes (Disabling, Other)
  Sender: FDA-Public Use
  Company Number: GB-MYLANLABS-2010S1017469

PATIENT
  Age: 50 Year
  Sex: Female

DRUGS (6)
  1. SIMVASTATIN [Suspect]
     Indication: PRODUCT USED FOR UNKNOWN INDICATION
  2. LIPITOR [Suspect]
     Indication: HYPERCHOLESTEROLAEMIA
     Dates: start: 20030310
  3. LIPITOR [Suspect]
     Dates: start: 19981113, end: 20061128
  4. PRAVASTATIN [Suspect]
     Indication: PRODUCT USED FOR UNKNOWN INDICATION
  5. EVOREL CONTI [Concomitant]
     Indication: PRODUCT USED FOR UNKNOWN INDICATION
  6. LANSOPRAZOLE [Concomitant]
     Indication: PRODUCT USED FOR UNKNOWN INDICATION

REACTIONS (23)
  - ANGIOEDEMA [None]
  - ARTHRITIS [None]
  - ASTHENIA [None]
  - BLEPHARITIS [None]
  - BLOOD CHOLESTEROL INCREASED [None]
  - CONJUNCTIVITIS [None]
  - DRUG INEFFECTIVE [None]
  - DRY MOUTH [None]
  - FATIGUE [None]
  - GASTRIC ULCER [None]
  - GASTROENTERITIS [None]
  - JOINT INJURY [None]
  - MEMORY IMPAIRMENT [None]
  - MUSCLE ATROPHY [None]
  - MUSCLE INJURY [None]
  - MYALGIA [None]
  - PAIN IN EXTREMITY [None]
  - PHOTOSENSITIVITY REACTION [None]
  - POST VIRAL FATIGUE SYNDROME [None]
  - RESTLESS LEGS SYNDROME [None]
  - ROAD TRAFFIC ACCIDENT [None]
  - SALIVARY HYPERSECRETION [None]
  - URTICARIA [None]
